FAERS Safety Report 4758420-1 (Version None)
Quarter: 2005Q3

REPORT INFORMATION
  Report Type: 
  Country: None (occurrence: None)
  Receive Date: 20050826
  Receipt Date: 20050809
  Transmission Date: 20060218
  Serious: Yes (Life-Threatening)
  Sender: FDA-Public Use
  Company Number: HK-2005-017303

PATIENT
  Age: 70 Year
  Sex: Male

DRUGS (1)
  1. FLUDARA [Suspect]
     Indication: CHRONIC LYMPHOCYTIC LEUKAEMIA STAGE 0
     Dosage: 25 MG/M2, CYCLE X 5D, INTRAVENOUS
     Route: 042
     Dates: start: 19960101

REACTIONS (3)
  - ACUTE MYELOID LEUKAEMIA [None]
  - MYELODYSPLASTIC SYNDROME [None]
  - PYREXIA [None]
